FAERS Safety Report 11219442 (Version 2)
Quarter: 2015Q3

REPORT INFORMATION
  Report Type: Spontaneous
  Country: US (occurrence: US)
  Receive Date: 20150625
  Receipt Date: 20150722
  Transmission Date: 20151125
  Serious: Yes (Death, Hospitalization, Other)
  Sender: FDA-Public Use
  Company Number: US-009507513-1506USA012354

PATIENT
  Sex: Female
  Weight: 57.14 kg

DRUGS (2)
  1. JANUMET [Suspect]
     Active Substance: METFORMIN HYDROCHLORIDE\SITAGLIPTIN PHOSPHATE
     Indication: TYPE 2 DIABETES MELLITUS
     Dosage: 50 MG/1000 MG, BID
     Route: 048
     Dates: start: 20111019, end: 20120111
  2. JANUVIA [Suspect]
     Active Substance: SITAGLIPTIN PHOSPHATE
     Indication: TYPE 2 DIABETES MELLITUS
     Dosage: 100 MG, QD
     Route: 048
     Dates: start: 20120111, end: 20120501

REACTIONS (31)
  - Alopecia [Unknown]
  - Death [Fatal]
  - Platelet count decreased [Unknown]
  - Arcus lipoides [Unknown]
  - Nephrolithiasis [Unknown]
  - Diverticulum intestinal [Unknown]
  - Diarrhoea [Unknown]
  - Diabetes mellitus inadequate control [Unknown]
  - Pyelonephritis [Unknown]
  - Hypokalaemia [Unknown]
  - Haematemesis [Unknown]
  - Pancreatic carcinoma metastatic [Unknown]
  - Renal cyst [Unknown]
  - Oesophagitis [Unknown]
  - Biopsy colon [Unknown]
  - Malnutrition [Unknown]
  - Kyphosis [Unknown]
  - Pulmonary embolism [Unknown]
  - Vision blurred [Unknown]
  - Abnormal loss of weight [Unknown]
  - Gastrointestinal disorder [Unknown]
  - Adrenal mass [Unknown]
  - Ecchymosis [Unknown]
  - Biopsy [Unknown]
  - Metastases to liver [Unknown]
  - Respiratory failure [Unknown]
  - Anaemia [Unknown]
  - Metastases to lymph nodes [Unknown]
  - Pancreatitis [Unknown]
  - Hypertension [Unknown]
  - Pleural effusion [Unknown]

NARRATIVE: CASE EVENT DATE: 201111
